FAERS Safety Report 13531636 (Version 1)
Quarter: 2017Q2

REPORT INFORMATION
  Report Type: Spontaneous
  Country: US (occurrence: US)
  Receive Date: 20170509
  Receipt Date: 20170509
  Transmission Date: 20170830
  Serious: Yes (Death)
  Sender: FDA-Public Use
  Company Number: None

PATIENT
  Age: 83 Year
  Sex: Female

DRUGS (1)
  1. REVLIMID [Suspect]
     Active Substance: LENALIDOMIDE
     Indication: HODGKIN^S DISEASE
     Route: 048
     Dates: start: 20170315, end: 20170324

REACTIONS (8)
  - Sinus node dysfunction [None]
  - Cardiac arrest [None]
  - Bradycardia [None]
  - Dyspnoea [None]
  - Pneumonia [None]
  - Confusional state [None]
  - Asthenia [None]
  - Hyponatraemia [None]

NARRATIVE: CASE EVENT DATE: 20170402
